FAERS Safety Report 4327524-X (Version None)
Quarter: 2004Q1

REPORT INFORMATION
  Report Type: 
  Country: None (occurrence: None)
  Receive Date: 20040325
  Receipt Date: 20040310
  Transmission Date: 20041129
  Serious: Yes (Life-Threatening, Hospitalization)
  Sender: FDA-Public Use
  Company Number: 2004-BP-01865RA

PATIENT
  Age: 69 Year
  Sex: Male

DRUGS (3)
  1. SPIRIVA [Suspect]
     Indication: CHRONIC OBSTRUCTIVE AIRWAYS DISEASE
     Dosage: 18 MCG ( 18 MCG, 18 MCG/D)
     Route: 055
     Dates: start: 20040211, end: 20040306
  2. NOZINAN MINOR (DR) [Concomitant]
  3. RISPERIDONE (RISPERIDONE) (TA) [Concomitant]

REACTIONS (5)
  - ANURIA [None]
  - CHRONIC OBSTRUCTIVE AIRWAYS DISEASE EXACERBATED [None]
  - CONFUSIONAL STATE [None]
  - EMOTIONAL DISORDER [None]
  - URINARY RETENTION [None]
